FAERS Safety Report 4301840-X (Version None)
Quarter: 2004Q1

REPORT INFORMATION
  Report Type: 
  Country: None (occurrence: None)
  Receive Date: 20040223
  Receipt Date: 20040216
  Transmission Date: 20041129
  Serious: Yes (Hospitalization)
  Sender: FDA-Public Use
  Company Number: US-GLAXOSMITHKLINE-A0498216A

PATIENT

DRUGS (2)
  1. COREG [Suspect]
     Indication: DRUG USE FOR UNKNOWN INDICATION
     Dosage: 12.5Z TWICE PER DAY
     Route: 048
  2. TEQUIN [Suspect]
     Indication: ILL-DEFINED DISORDER
     Dosage: 400MG PER DAY

REACTIONS (2)
  - BRADYCARDIA [None]
  - DRUG INTERACTION [None]
